FAERS Safety Report 17576366 (Version 1)
Quarter: 2020Q1

REPORT INFORMATION
  Report Type: Other
  Country: US (occurrence: US)
  Receive Date: 20200324
  Receipt Date: 20200324
  Transmission Date: 20200409
  Serious: No
  Sender: FDA-Public Use
  Company Number: US-ACORDA-ACO_163075_2019

PATIENT
  Age: 70 Year
  Sex: Female

DRUGS (1)
  1. INBRIJA [Suspect]
     Active Substance: LEVODOPA
     Indication: PARKINSON^S DISEASE
     Dosage: 84 MILLIGRAM, PRN (INHALE CONTENTS OF TWO CAPSULES UP TO FIVE TIMES
     Dates: start: 20191228

REACTIONS (3)
  - Drug hypersensitivity [Unknown]
  - Cold sweat [Unknown]
  - Dyspnoea [Unknown]

NARRATIVE: CASE EVENT DATE: 20191230
